FAERS Safety Report 6801647-5 (Version None)
Quarter: 2010Q2

REPORT INFORMATION
  Report Type: 
  Country: None (occurrence: None)
  Receive Date: 20100629
  Receipt Date: 20100616
  Transmission Date: 20101027
  Serious: Yes (Death)
  Sender: FDA-Public Use
  Company Number: GB-GENENTECH-302512

PATIENT
  Sex: Female

DRUGS (1)
  1. LUCENTIS [Suspect]
     Indication: MACULAR DEGENERATION
     Dosage: UNK
     Route: 031
     Dates: start: 20080801, end: 20090301

REACTIONS (3)
  - ACUTE MYOCARDIAL INFARCTION [None]
  - CATHETERISATION CARDIAC [None]
  - MYOCARDIAL ISCHAEMIA [None]
